FAERS Safety Report 23559347 (Version 1)
Quarter: 2024Q1

REPORT INFORMATION
  Report Type: Spontaneous
  Country: PL (occurrence: PL)
  Receive Date: 20240223
  Receipt Date: 20240223
  Transmission Date: 20240410
  Serious: Yes (Other)
  Sender: FDA-Public Use
  Company Number: None

PATIENT
  Age: 53 Year
  Sex: Male
  Weight: 89 kg

DRUGS (1)
  1. VANCOMYCIN [Suspect]
     Active Substance: VANCOMYCIN
     Indication: Anal fistula
     Dosage: 1.5 GRAM, QD
     Route: 042
     Dates: start: 20200422, end: 20200508

REACTIONS (2)
  - Leukopenia [Recovered/Resolved]
  - Vancomycin infusion reaction [Recovered/Resolved]
